FAERS Safety Report 16022291 (Version 1)
Quarter: 2019Q1

REPORT INFORMATION
  Report Type: Spontaneous
  Country: CA (occurrence: CA)
  Receive Date: 20190301
  Receipt Date: 20190301
  Transmission Date: 20190418
  Serious: Yes (Other)
  Sender: FDA-Public Use
  Company Number: CA-AUROBINDO-AUR-APL-2019-010339

PATIENT

DRUGS (3)
  1. CEFIXIME. [Suspect]
     Active Substance: CEFIXIME
     Indication: DIVERTICULITIS
     Dosage: 400 MILLIGRAM, DAILY
     Route: 048
  2. CEFIXIME. [Suspect]
     Active Substance: CEFIXIME
     Dosage: 400 MILLIGRAM
     Route: 048
  3. METRONIDAZOLE. [Concomitant]
     Active Substance: METRONIDAZOLE
     Indication: PRODUCT USED FOR UNKNOWN INDICATION
     Dosage: UNK
     Route: 065

REACTIONS (3)
  - Drug hypersensitivity [Unknown]
  - Throat tightness [Unknown]
  - Paraesthesia oral [Unknown]
